FAERS Safety Report 6056428-X (Version None)
Quarter: 2009Q1

REPORT INFORMATION
  Report Type: 
  Country: None (occurrence: None)
  Receive Date: 20090126
  Receipt Date: 20090126
  Transmission Date: 20090719
  Serious: No
  Sender: FDA-Public Use
  Company Number: None

PATIENT
  Sex: Female
  Weight: 67.1324 kg

DRUGS (2)
  1. ACTONEL [Suspect]
     Indication: OSTEOPOROSIS
     Dosage: 1 - 150 MG 1 PER MONTH ORAL
     Route: 048
     Dates: start: 20081201
  2. ACTONEL [Suspect]
     Indication: OSTEOPOROSIS
     Dosage: 1 - 150 MG 1 PER MONTH ORAL
     Route: 048
     Dates: start: 20090101

REACTIONS (3)
  - MUSCULOSKELETAL CHEST PAIN [None]
  - OEDEMA PERIPHERAL [None]
  - PAIN IN EXTREMITY [None]
